FAERS Safety Report 13243634 (Version 6)
Quarter: 2017Q3

REPORT INFORMATION
  Report Type: Report from Study
  Country: US (occurrence: US)
  Receive Date: 20170216
  Receipt Date: 20170719
  Transmission Date: 20171127
  Serious: Yes (Hospitalization)
  Sender: FDA-Public Use
  Company Number: US-ACTELION-A-US2013-91467

PATIENT
  Age: 59 Year
  Sex: Female
  Weight: 78.5 kg

DRUGS (3)
  1. VELETRI [Suspect]
     Active Substance: EPOPROSTENOL
     Dosage: 29.5 NG/KG, PER MIN
     Route: 042
     Dates: start: 20111115
  2. VELETRI [Suspect]
     Active Substance: EPOPROSTENOL
     Dosage: 32 NG/KG, PER MIN
     Route: 042
  3. VELETRI [Suspect]
     Active Substance: EPOPROSTENOL
     Indication: PULMONARY ARTERIAL HYPERTENSION
     Dosage: 31 NG/KG, PER MIN
     Route: 042

REACTIONS (22)
  - Constipation [Unknown]
  - Infusion site warmth [Unknown]
  - Nausea [Unknown]
  - Pain in jaw [Unknown]
  - Laceration [Unknown]
  - Dyspnoea at rest [Unknown]
  - Post procedural complication [Unknown]
  - Hernia repair [Unknown]
  - Anaemia [Unknown]
  - Abdominal hernia [Not Recovered/Not Resolved]
  - Dyspnoea [Unknown]
  - Chest pain [Unknown]
  - Skin operation [Unknown]
  - Weight decreased [Unknown]
  - Thrombosis in device [Unknown]
  - Palpitations [Unknown]
  - Life support [Unknown]
  - Diarrhoea [Unknown]
  - Dyspnoea exertional [Unknown]
  - Device related infection [Unknown]
  - Catheter site erythema [Unknown]
  - Arterial haemorrhage [Unknown]

NARRATIVE: CASE EVENT DATE: 20131114
